FAERS Safety Report 6598175-1 (Version None)
Quarter: 2010Q1

REPORT INFORMATION
  Report Type: 
  Country: None (occurrence: None)
  Receive Date: 20100224
  Receipt Date: 20050112
  Transmission Date: 20100710
  Serious: No
  Sender: FDA-Public Use
  Company Number: US-ALLERGAN-200500327

PATIENT
  Age: 42 Year
  Sex: Male

DRUGS (1)
  1. BOTOX [Suspect]
     Indication: ANAL FISSURE
     Dosage: 10UNITS, SINGLE
     Route: 030

REACTIONS (3)
  - INJECTION SITE PAIN [None]
  - PRURITUS [None]
  - RASH [None]
